FAERS Safety Report 4548395-2 (Version None)
Quarter: 2005Q1

REPORT INFORMATION
  Report Type: 
  Country: None (occurrence: None)
  Receive Date: 20041227
  Receipt Date: 20040927
  Transmission Date: 20050727
  Serious: Yes (Hospitalization)
  Sender: FDA-Public Use
  Company Number: 04P-163-0274806-00

PATIENT
  Age: 55 Year
  Sex: Male
  Weight: 62.5964 kg

DRUGS (9)
  1. HUMIRA [Suspect]
     Indication: PSORIATIC ARTHROPATHY
     Dosage: 40 MG, 1 IN 1 WEEK, SUBCUTANEOUS; SEE IMAGE
     Route: 058
     Dates: start: 20031101, end: 20031201
  2. HUMIRA [Suspect]
     Indication: PSORIATIC ARTHROPATHY
     Dosage: 40 MG, 1 IN 1 WEEK, SUBCUTANEOUS; SEE IMAGE
     Route: 058
     Dates: start: 20040101, end: 20040701
  3. HUMIRA [Suspect]
     Indication: PSORIATIC ARTHROPATHY
     Dosage: 40 MG, 1 IN 1 WEEK, SUBCUTANEOUS; SEE IMAGE
     Route: 058
     Dates: start: 20040801
  4. ROFECOXIB [Concomitant]
  5. METOPROLOL SUCCINATE [Concomitant]
  6. ATORVASTATIN [Concomitant]
  7. METHOTREXATE [Concomitant]
  8. FOLINIC ACID [Concomitant]
  9. ACETYLSALICYLIC ACID SRT [Concomitant]

REACTIONS (3)
  - MEDICATION ERROR [None]
  - MYOCARDIAL INFARCTION [None]
  - TENDONITIS [None]
